FAERS Safety Report 7055045-2 (Version None)
Quarter: 2010Q4

REPORT INFORMATION
  Report Type: 
  Country: None (occurrence: None)
  Receive Date: 20101021
  Receipt Date: 20101012
  Transmission Date: 20110411
  Serious: No
  Sender: FDA-Public Use
  Company Number: US-JNJFOC-20101003698

PATIENT
  Sex: Male
  Weight: 97.52 kg

DRUGS (2)
  1. FENTANYL CITRATE [Suspect]
     Indication: ARTHRALGIA
     Route: 062
  2. MORPHINE SULFATE [Concomitant]
     Indication: BREAKTHROUGH PAIN
     Route: 048

REACTIONS (6)
  - HEADACHE [None]
  - HYPERHIDROSIS [None]
  - PRODUCT ADHESION ISSUE [None]
  - TEARFULNESS [None]
  - WITHDRAWAL SYNDROME [None]
  - WRONG TECHNIQUE IN DRUG USAGE PROCESS [None]
